FAERS Safety Report 5335296-5 (Version None)
Quarter: 2007Q2

REPORT INFORMATION
  Report Type: 
  Country: None (occurrence: None)
  Receive Date: 20070308
  Receipt Date: 20070122
  Transmission Date: 20071010
  Serious: No
  Sender: FDA-Public Use
  Company Number: 2007-BP-01057BP

PATIENT
  Sex: Male

DRUGS (4)
  1. SPIRIVA [Suspect]
     Indication: CHRONIC OBSTRUCTIVE PULMONARY DISEASE
     Dosage: 18 MCG (18 MCG, 1 CAP DAILY) IH
     Route: 055
     Dates: start: 20050101
  2. AVAPRO [Concomitant]
  3. ADVAIR               (SERETIDE) [Concomitant]
  4. COMBIVENT [Concomitant]

REACTIONS (3)
  - MICTURITION URGENCY [None]
  - URINARY RETENTION [None]
  - URINE FLOW DECREASED [None]
